FAERS Safety Report 7071189-3 (Version None)
Quarter: 2010Q4

REPORT INFORMATION
  Report Type: 
  Country: None (occurrence: None)
  Receive Date: 20101027
  Receipt Date: 20101027
  Transmission Date: 20110411
  Serious: Yes (Hospitalization)
  Sender: FDA-Public Use
  Company Number: None

PATIENT
  Sex: Female
  Weight: 101 kg

DRUGS (8)
  1. CYCLOPHOSPHAMIDE [Suspect]
     Dosage: 2100 MG
  2. CYTARABINE [Suspect]
     Dosage: 1264 MG
  3. DEXAMETHASONE [Suspect]
     Dosage: 224 MG
  4. DOXORUBICIN HYDROCHLORIDE [Suspect]
     Dosage: 165 MG
  5. METHOTREXATE [Suspect]
     Dosage: 45 MG
  6. PEG-L ASPARAGINASE (K-H) [Suspect]
     Dosage: 11000 MG
  7. THIOGUANINE [Suspect]
     Dosage: 1960 MG
  8. VINCRISTINE SULFATE [Suspect]
     Dosage: 10 MG

REACTIONS (12)
  - BLOOD CULTURE POSITIVE [None]
  - DYSPNOEA [None]
  - FATIGUE [None]
  - FEBRILE NEUTROPENIA [None]
  - HAEMODIALYSIS [None]
  - HYPOXIA [None]
  - METABOLIC ACIDOSIS [None]
  - NEPHROPATHY TOXIC [None]
  - PYREXIA [None]
  - RENAL FAILURE [None]
  - STREPTOCOCCAL INFECTION [None]
  - TACHYCARDIA [None]
